FAERS Safety Report 25935136 (Version 1)
Quarter: 2025Q4

REPORT INFORMATION
  Report Type: Spontaneous
  Country: US (occurrence: None)
  Receive Date: 20251017
  Receipt Date: 20251017
  Transmission Date: 20260117
  Serious: No
  Sender: INCYTE
  Company Number: US-INCYTE CORPORATION-2025IN011088

PATIENT
  Age: 83 Year

DRUGS (1)
  1. JAKAFI [Suspect]
     Active Substance: RUXOLITINIB
     Dosage: 5 MILLIGRAM, BID

REACTIONS (3)
  - Feeling abnormal [Unknown]
  - Dyspnoea [Unknown]
  - Haemoglobin decreased [Unknown]
